FAERS Safety Report 4721635-2 (Version None)
Quarter: 2005Q3

REPORT INFORMATION
  Report Type: 
  Country: None (occurrence: None)
  Receive Date: 20050721
  Receipt Date: 20050127
  Transmission Date: 20060218
  Serious: No
  Sender: FDA-Public Use
  Company Number: US-BRISTOL-MYERS SQUIBB COMPANY-12840294

PATIENT
  Age: 71 Year
  Sex: Female

DRUGS (3)
  1. COUMADIN [Suspect]
     Indication: ATRIAL FIBRILLATION
     Dosage: DOSE:  1 TABLET DAILY ALTERNATING WITH 1/2 TABLET DAILY.
  2. SYNTHROID [Concomitant]
  3. ESTRACE [Concomitant]

REACTIONS (1)
  - IRRITABLE BOWEL SYNDROME [None]
